FAERS Safety Report 24093176 (Version 1)
Quarter: 2024Q3

REPORT INFORMATION
  Report Type: Spontaneous
  Country: ZA (occurrence: ZA)
  Receive Date: 20240715
  Receipt Date: 20240715
  Transmission Date: 20241016
  Serious: Yes (Other)
  Sender: BRISTOL MYERS SQUIBB
  Company Number: ZA-BRISTOL-MYERS SQUIBB COMPANY-2024-111716

PATIENT
  Age: 42 Year
  Sex: Female

DRUGS (5)
  1. ORENCIA [Suspect]
     Active Substance: ABATACEPT
     Indication: Product used for unknown indication
     Dates: start: 20170406, end: 20171002
  2. ETANERCEPT [Suspect]
     Active Substance: ETANERCEPT
     Indication: Product used for unknown indication
     Dates: start: 20171012
  3. METHOTREXATE [Suspect]
     Active Substance: METHOTREXATE
     Indication: Product used for unknown indication
     Dates: start: 20151001
  4. SULFASALAZINE [Suspect]
     Active Substance: SULFASALAZINE
     Indication: Product used for unknown indication
     Dates: start: 20151001, end: 20151101
  5. LEFLUNOMIDE [Suspect]
     Active Substance: LEFLUNOMIDE
     Indication: Product used for unknown indication
     Dates: start: 20160101

REACTIONS (11)
  - White blood cell count increased [Unknown]
  - C-reactive protein increased [Unknown]
  - Lymphocyte count increased [Unknown]
  - Red blood cell count increased [Unknown]
  - Mean cell haemoglobin decreased [Unknown]
  - Mean cell haemoglobin concentration decreased [Unknown]
  - Neutrophilia [Unknown]
  - Eosinophilia [Unknown]
  - Nephropathy [Unknown]
  - Hypochromasia [Unknown]
  - Iron deficiency [Unknown]
